FAERS Safety Report 15308262 (Version 1)
Quarter: 2018Q3

REPORT INFORMATION
  Report Type: Spontaneous
  Country: GB (occurrence: GB)
  Receive Date: 20180822
  Receipt Date: 20180822
  Transmission Date: 20181010
  Serious: Yes (Life-Threatening)
  Sender: FDA-Public Use
  Company Number: GB-TEVA-2018-GB-945849

PATIENT
  Age: 55 Year
  Sex: Female
  Weight: 51.7 kg

DRUGS (3)
  1. TRASTUZUMAB. [Concomitant]
     Active Substance: TRASTUZUMAB
     Route: 065
  2. PACLITAXEL. [Suspect]
     Active Substance: PACLITAXEL
     Indication: BREAST CANCER
     Route: 042
     Dates: start: 20180716, end: 20180716
  3. PERTUZUMAB. [Concomitant]
     Active Substance: PERTUZUMAB
     Route: 065

REACTIONS (3)
  - Flushing [Unknown]
  - Rash generalised [Recovered/Resolved]
  - Dyspnoea [Recovered/Resolved]

NARRATIVE: CASE EVENT DATE: 20180716
